FAERS Safety Report 9736990 (Version 1)
Quarter: 2013Q4

REPORT INFORMATION
  Report Type: Spontaneous
  Country: ES (occurrence: ES)
  Receive Date: 20131206
  Receipt Date: 20131206
  Transmission Date: 20140711
  Serious: Yes (Hospitalization, Other)
  Sender: FDA-Public Use
  Company Number: PHHY2013ES138837

PATIENT
  Age: 75 Year
  Sex: Male

DRUGS (1)
  1. METFORMIN [Suspect]
     Indication: TYPE 2 DIABETES MELLITUS
     Dosage: 850 MG, 8 HOURS

REACTIONS (18)
  - Bundle branch block right [Unknown]
  - Renal impairment [Unknown]
  - Hyperkalaemia [Not Recovered/Not Resolved]
  - Anuria [Unknown]
  - Blood creatinine increased [Unknown]
  - Blood urea increased [Unknown]
  - Lactic acidosis [Unknown]
  - Metabolic acidosis [Not Recovered/Not Resolved]
  - Blood lactic acid increased [Not Recovered/Not Resolved]
  - Anion gap increased [Not Recovered/Not Resolved]
  - Sinus tachycardia [Unknown]
  - Blood pressure decreased [Unknown]
  - Dyspnoea [Unknown]
  - Blood pH decreased [Unknown]
  - Abdominal pain upper [Unknown]
  - Blood bicarbonate decreased [Unknown]
  - Diarrhoea [Unknown]
  - Electrocardiogram P wave abnormal [Unknown]
